FAERS Safety Report 6616854-4 (Version None)
Quarter: 2010Q1

REPORT INFORMATION
  Report Type: 
  Country: None (occurrence: None)
  Receive Date: 20100305
  Receipt Date: 20100223
  Transmission Date: 20100710
  Serious: Yes (Death, Hospitalization)
  Sender: FDA-Public Use
  Company Number: GB-PFIZER INC-2010018382

PATIENT
  Age: 62 Year
  Sex: Male

DRUGS (10)
  1. PREDNISOLONE [Suspect]
     Indication: PROSTATE CANCER
     Dosage: 5 MG, 2X/DAY
     Route: 048
     Dates: start: 20090929, end: 20100204
  2. BLINDED *NO SUBJECT DRUG [Suspect]
     Indication: PROSTATE CANCER
     Dosage: 25 MG, 1X/DAY
     Route: 048
     Dates: start: 20090929, end: 20100204
  3. BLINDED *PLACEBO [Suspect]
     Indication: PROSTATE CANCER
     Dosage: 25 MG, 1X/DAY
     Route: 048
     Dates: start: 20090929, end: 20100204
  4. BLINDED SUNITINIB MALATE [Suspect]
     Indication: PROSTATE CANCER
     Dosage: 25 MG, 1X/DAY
     Route: 048
     Dates: start: 20090929, end: 20100204
  5. OMEPRAZOLE [Concomitant]
     Indication: DYSPEPSIA
     Dosage: 20 MG, 2X/DAY
     Route: 048
     Dates: start: 20081111
  6. DOMPERIDONE [Concomitant]
     Indication: NAUSEA
     Dosage: 20 MG, 2X/DAY
     Route: 048
     Dates: start: 20081111
  7. SEVREDOL [Concomitant]
     Indication: ANALGESIC THERAPY
     Dosage: 20 MG, AS NEEDED
     Route: 048
     Dates: start: 20090907
  8. DICLOFENAC [Concomitant]
     Indication: ANALGESIC THERAPY
     Dosage: 50 MG, 3X/DAY
     Route: 048
     Dates: start: 20090907
  9. MORPHINE SULFATE [Concomitant]
     Indication: ANALGESIC THERAPY
     Dosage: 30 MG, 2X/DAY
     Route: 048
     Dates: start: 20090929
  10. MORPHINE SULFATE [Concomitant]
     Dosage: 10 MG, AS NEEDED
     Route: 048
     Dates: start: 20090925

REACTIONS (6)
  - CATHETER SITE HAEMORRHAGE [None]
  - DISEASE PROGRESSION [None]
  - GENERAL PHYSICAL HEALTH DETERIORATION [None]
  - MALIGNANT NEOPLASM PROGRESSION [None]
  - PROSTATE CANCER [None]
  - URINARY RETENTION [None]
